FAERS Safety Report 4724363-2 (Version None)
Quarter: 2005Q3

REPORT INFORMATION
  Report Type: 
  Country: None (occurrence: None)
  Receive Date: 20050721
  Receipt Date: 20050713
  Transmission Date: 20060218
  Serious: Yes (Other)
  Sender: FDA-Public Use
  Company Number: DE-2005-004879

PATIENT
  Age: 38 Year
  Sex: Female

DRUGS (1)
  1. MIRENA [Suspect]
     Dosage: 20 ?G, CONT, INTRA-UTERINE
     Route: 015
     Dates: start: 20050301

REACTIONS (2)
  - ERYTHEMA NODOSUM [None]
  - MUSCULOSKELETAL PAIN [None]
